FAERS Safety Report 4963408-1 (Version None)
Quarter: 2006Q1

REPORT INFORMATION
  Report Type: 
  Country: None (occurrence: None)
  Receive Date: 20060329
  Receipt Date: 20060316
  Transmission Date: 20060701
  Serious: Yes (Life-Threatening)
  Sender: FDA-Public Use
  Company Number: 2006037617

PATIENT
  Age: 43 Year
  Sex: Female

DRUGS (6)
  1. GEODON [Suspect]
     Indication: ILL-DEFINED DISORDER
  2. LITHIUM (LITHIUM) [Suspect]
     Indication: ILL-DEFINED DISORDER
  3. OLANZAPINE [Suspect]
     Indication: ILL-DEFINED DISORDER
  4. VENLAFAXINE HCL [Suspect]
     Indication: ILL-DEFINED DISORDER
  5. ZOLPIDEM TARTRATE [Suspect]
     Indication: ILL-DEFINED DISORDER
  6. DESIPRAMINE HYDROCHLORIDE [Suspect]
     Indication: ILL-DEFINED DISORDER

REACTIONS (1)
  - MULTIPLE DRUG OVERDOSE [None]
